FAERS Safety Report 4265049-0 (Version None)
Quarter: 2004Q1

REPORT INFORMATION
  Report Type: 
  Country: None (occurrence: None)
  Receive Date: 20040106
  Receipt Date: 20040106
  Transmission Date: 20041129
  Serious: Yes (Life-Threatening, Hospitalization, Disabling)
  Sender: FDA-Public Use
  Company Number: None

PATIENT
  Age: 21 Year
  Sex: Male
  Weight: 81.6475 kg

DRUGS (1)
  1. ADDERALL 10 [Suspect]
     Dosage: ONE A DAY
     Dates: start: 20030415, end: 20030514

REACTIONS (1)
  - PSYCHOTIC DISORDER [None]
